FAERS Safety Report 10652375 (Version 1)
Quarter: 2014Q4

REPORT INFORMATION
  Report Type: Spontaneous
  Country: US (occurrence: None)
  Receive Date: 20141211
  Receipt Date: 20141211
  Transmission Date: 20150529
  Serious: Yes (Other)
  Sender: FDA-Public Use
  Company Number: 2014-US-015912

PATIENT
  Age: 55 Year
  Sex: Female
  Weight: 58.5 kg

DRUGS (5)
  1. VITAMIN D (ERGOCALCIFEROL) [Concomitant]
     Active Substance: ERGOCALCIFEROL
  2. MAXALT (RIZATRIPTAN BENZOATE) [Concomitant]
     Active Substance: RIZATRIPTAN BENZOATE
  3. ONDANSETRON [Concomitant]
     Active Substance: ONDANSETRON
  4. OXYGEN (OXYGEN) [Concomitant]
     Active Substance: OXYGEN
  5. XYREM [Suspect]
     Active Substance: SODIUM OXYBATE
     Indication: INSOMNIA
     Route: 048
     Dates: start: 201303, end: 2013

REACTIONS (7)
  - Weight decreased [None]
  - Drug interaction [None]
  - Pneumothorax [None]
  - Off label use [None]
  - Scar [None]
  - Lobar pneumonia [None]
  - Diaphragmatic paralysis [None]

NARRATIVE: CASE EVENT DATE: 201405
